FAERS Safety Report 5937318-7 (Version None)
Quarter: 2008Q4

REPORT INFORMATION
  Report Type: 
  Country: None (occurrence: None)
  Receive Date: 20081031
  Receipt Date: 20081027
  Transmission Date: 20090506
  Serious: Yes (Other)
  Sender: FDA-Public Use
  Company Number: US-ASTRAZENECA-2008UW24103

PATIENT
  Age: 68 Year
  Sex: Female

DRUGS (9)
  1. ARIMIDEX [Suspect]
     Route: 048
     Dates: start: 20071101
  2. K-DUR [Concomitant]
  3. GLYBURIDE [Concomitant]
     Dosage: 5 MG, 2 TABLETS BID
  4. LOVASTATIN [Concomitant]
  5. JANUVIA [Concomitant]
  6. LASIX [Concomitant]
     Dosage: 40 MG, 2 TABLETS BID
  7. LISINOPRIL [Concomitant]
  8. TRAMADOL HCL [Concomitant]
  9. MILK OF MAGNESIA TAB [Concomitant]
     Dosage: 2 TABLETS DAILY

REACTIONS (8)
  - BURNING SENSATION [None]
  - GLOSSODYNIA [None]
  - HAIR GROWTH ABNORMAL [None]
  - HOT FLUSH [None]
  - HYPERGLYCAEMIA [None]
  - HYPOAESTHESIA ORAL [None]
  - HYPOGLYCAEMIA [None]
  - ORAL PRURITUS [None]
